FAERS Safety Report 21155256 (Version 2)
Quarter: 2022Q3

REPORT INFORMATION
  Report Type: Report from Study
  Country: US (occurrence: US)
  Receive Date: 20220801
  Receipt Date: 20220824
  Transmission Date: 20221026
  Serious: Yes (Other)
  Sender: FDA-Public Use
  Company Number: US-CELGENE-USA-20200406734

PATIENT
  Age: 73 Year
  Sex: Male
  Weight: 80.29 kg

DRUGS (2)
  1. REVLIMID [Suspect]
     Active Substance: LENALIDOMIDE
     Indication: 5q minus syndrome
     Dosage: 10 MILLIGRAM 21 DAYS ON AND 7 DAYS OFF?A3764A; EXPIRY DATE: 30-SEP-2024
     Route: 048
     Dates: start: 20191214
  2. REVLIMID [Suspect]
     Active Substance: LENALIDOMIDE
     Dosage: 21 DAYS ON AND 7 DAYS OFF
     Route: 048

REACTIONS (3)
  - COVID-19 [Recovering/Resolving]
  - Thrombosis [Unknown]
  - Pain [Unknown]

NARRATIVE: CASE EVENT DATE: 20220801
